FAERS Safety Report 16616325 (Version 2)
Quarter: 2019Q4

REPORT INFORMATION
  Report Type: Report from Study
  Country: IT (occurrence: IT)
  Receive Date: 20190723
  Receipt Date: 20191002
  Transmission Date: 20200122
  Serious: Yes (Other)
  Sender: FDA-Public Use
  Company Number: IT-MYLANLABS-2019M1067651

PATIENT
  Age: 65 Year
  Sex: Female

DRUGS (3)
  1. SERTRALINE [Concomitant]
     Active Substance: SERTRALINE HYDROCHLORIDE
     Indication: DEPRESSION
     Dosage: 50 MILLIGRAM
     Route: 048
  2. FLURAZEPAM [Suspect]
     Active Substance: FLURAZEPAM HYDROCHLORIDE
     Indication: DEPRESSION
     Dosage: 25 MILLIGRAM, TOTAL
     Route: 048
     Dates: start: 20180617, end: 20180617
  3. PREGABALIN. [Suspect]
     Active Substance: PREGABALIN
     Indication: PERSONALITY DISORDER
     Dosage: 25 MILLIGRAM, TOTAL
     Route: 048
     Dates: start: 20180617, end: 20180617

REACTIONS (4)
  - Asthenia [Recovering/Resolving]
  - Intentional product misuse [Unknown]
  - Drug abuse [Unknown]
  - Sopor [Recovering/Resolving]

NARRATIVE: CASE EVENT DATE: 20180617
